FAERS Safety Report 6012370-1 (Version None)
Quarter: 2008Q4

REPORT INFORMATION
  Report Type: 
  Country: None (occurrence: None)
  Receive Date: 20081218
  Receipt Date: 20080916
  Transmission Date: 20090506
  Serious: No
  Sender: FDA-Public Use
  Company Number: US-ASTRAZENECA-2008UW19225

PATIENT
  Age: 50 Year
  Sex: Female

DRUGS (4)
  1. SYMBICORT [Suspect]
     Dosage: 160/4.5 2 INHALATION BID
     Route: 055
     Dates: end: 20080816
  2. XOPENEX [Concomitant]
     Dosage: 0.63
  3. XOPENEX [Concomitant]
  4. FLONASE [Concomitant]
     Dosage: 50 MCG 2 PUFFS BID

REACTIONS (2)
  - OROPHARYNGEAL PAIN [None]
  - PEAK EXPIRATORY FLOW RATE DECREASED [None]
